FAERS Safety Report 4930592-5 (Version None)
Quarter: 2006Q1

REPORT INFORMATION
  Report Type: 
  Country: None (occurrence: None)
  Receive Date: 20060302
  Receipt Date: 20051020
  Transmission Date: 20060701
  Serious: Yes (Hospitalization)
  Sender: FDA-Public Use
  Company Number: US-MERCK-0510USA08444

PATIENT
  Age: 38 Year
  Sex: Male
  Weight: 98 kg

DRUGS (5)
  1. VIOXX [Suspect]
     Indication: OSTEOARTHRITIS
     Route: 048
     Dates: start: 20000619, end: 20040930
  2. VIOXX [Suspect]
     Route: 048
     Dates: start: 20000619, end: 20040930
  3. VIOXX [Suspect]
     Indication: PAIN
     Route: 048
     Dates: start: 20000619, end: 20040930
  4. VIOXX [Suspect]
     Route: 048
     Dates: start: 20000619, end: 20040930
  5. DARVOCET-N 50 [Concomitant]
     Route: 065

REACTIONS (7)
  - ARTERIOSCLEROSIS [None]
  - ASTHENIA [None]
  - CHEST PAIN [None]
  - HYPERLIPIDAEMIA [None]
  - MYOCARDIAL INFARCTION [None]
  - OSTEOARTHRITIS [None]
  - SKIN LESION [None]
